FAERS Safety Report 10064552 (Version 1)
Quarter: 2014Q2

REPORT INFORMATION
  Report Type: Spontaneous
  Country: US (occurrence: None)
  Receive Date: 20140407
  Receipt Date: 20140407
  Transmission Date: 20141212
  Serious: Yes (Other)
  Sender: FDA-Public Use
  Company Number: None

PATIENT
  Age: 63 Year
  Sex: Male
  Weight: 72.58 kg

DRUGS (2)
  1. MIRVASO [Suspect]
     Indication: ROSACEA
     Dosage: APPLY TO FACE ONCE DAILY APPLIED TO A SURFACE, USUALLY THE SKIN
  2. MIRVASO [Suspect]
     Indication: FLUSHING
     Dosage: APPLY TO FACE ONCE DAILY APPLIED TO A SURFACE, USUALLY THE SKIN

REACTIONS (3)
  - Flushing [None]
  - Sunburn [None]
  - Condition aggravated [None]
